FAERS Safety Report 4522784-4 (Version None)
Quarter: 2004Q4

REPORT INFORMATION
  Report Type: 
  Country: None (occurrence: None)
  Receive Date: 20041209
  Receipt Date: 20041206
  Transmission Date: 20050328
  Serious: Yes (Disabling)
  Sender: FDA-Public Use
  Company Number: US-MERCK-0412USA00726

PATIENT
  Sex: Female

DRUGS (3)
  1. FOSAMAX [Suspect]
     Indication: DENTAL OPERATION
     Route: 048
     Dates: start: 19910101, end: 20041001
  2. OGEN [Concomitant]
     Route: 065
  3. DITROPAN XL [Concomitant]
     Route: 065

REACTIONS (1)
  - THROAT IRRITATION [None]
